FAERS Safety Report 8473456-5 (Version None)
Quarter: 2012Q2

REPORT INFORMATION
  Report Type: 
  Country: None (occurrence: None)
  Receive Date: 20120625
  Receipt Date: 20120625
  Transmission Date: 20120825
  Serious: Yes (Hospitalization)
  Sender: FDA-Public Use
  Company Number: None

PATIENT
  Age: 54 Year
  Sex: Male
  Weight: 49.8957 kg

DRUGS (11)
  1. FLUOXETINE [Concomitant]
  2. PEGASYS [Concomitant]
  3. PEGASYS [Suspect]
     Indication: HEPATITIS
     Dosage: 180 MCG WEEKLY SUBCUTANEOUSLY
     Route: 058
     Dates: start: 20120410
  4. CYCLOSPORINE [Concomitant]
  5. TAMSULOSIN HCL [Concomitant]
  6. MULTI-VITAMIN [Concomitant]
  7. RIBAVIRIN [Concomitant]
  8. MYFORTIC [Concomitant]
  9. TELAPREVIR [Concomitant]
  10. LOSARTAN POTASSIUM [Concomitant]
  11. ALLOPURINOL [Concomitant]

REACTIONS (7)
  - PANCREATITIS [None]
  - LACTIC ACIDOSIS [None]
  - LEUKOPENIA [None]
  - ILEUS [None]
  - ANAEMIA [None]
  - CLAUSTROPHOBIA [None]
  - DIARRHOEA [None]
